FAERS Safety Report 7320518-1 (Version None)
Quarter: 2011Q1

REPORT INFORMATION
  Report Type: 
  Country: None (occurrence: None)
  Receive Date: 20110228
  Receipt Date: 20110221
  Transmission Date: 20110831
  Serious: Yes (Other)
  Sender: FDA-Public Use
  Company Number: DE-B.I. PHARMACEUTICALS,INC./RIDGEFIELD-2011-DE-01222DE

PATIENT
  Sex: Male

DRUGS (8)
  1. LEVOTHYROXINE SODIUM [Suspect]
     Dosage: 0.025 MG
     Route: 048
  2. LEFAX [Suspect]
     Dosage: 1 ANZ
     Route: 048
  3. MICARDIS [Suspect]
     Dosage: 40 MG
     Route: 048
  4. VALPROAT [Suspect]
     Dosage: 800 MG
     Route: 048
  5. CARVEDILOL [Suspect]
     Dosage: 3.125 MG
     Route: 048
  6. LACTULOSE [Suspect]
     Route: 048
  7. PANTOZOL [Suspect]
     Dosage: 1 ANZ
     Route: 048
  8. CITALOPRAM [Suspect]
     Dosage: 20 MG
     Route: 048

REACTIONS (1)
  - ACCIDENTAL EXPOSURE [None]
